FAERS Safety Report 9560247 (Version 1)
Quarter: 2013Q3

REPORT INFORMATION
  Report Type: Spontaneous
  Country: US (occurrence: US)
  Receive Date: 20130927
  Receipt Date: 20130927
  Transmission Date: 20140515
  Serious: Yes (Death)
  Sender: FDA-Public Use
  Company Number: US-ELI_LILLY_AND_COMPANY-US201309006723

PATIENT
  Sex: Female

DRUGS (5)
  1. CYMBALTA [Suspect]
     Indication: DEPRESSION
     Dosage: 60 MG, QD
     Route: 065
     Dates: start: 201203, end: 201205
  2. CYMBALTA [Interacting]
     Indication: POST-TRAUMATIC STRESS DISORDER
     Dosage: 120 MG, QD
     Route: 065
     Dates: start: 201205
  3. ETHANOL [Interacting]
     Indication: PRODUCT USED FOR UNKNOWN INDICATION
  4. LAMICTAL [Concomitant]
     Indication: AFFECTIVE DISORDER
     Dosage: 100 MG, QD
     Route: 065
  5. TOPAMAX [Concomitant]
     Indication: WEIGHT CONTROL
     Dosage: 100 MG, QD
     Route: 065

REACTIONS (4)
  - Death [Fatal]
  - Memory impairment [Unknown]
  - Overdose [Unknown]
  - Drug interaction [Unknown]
